FAERS Safety Report 10979122 (Version 1)
Quarter: 2015Q1

REPORT INFORMATION
  Report Type: Spontaneous
  Country: US (occurrence: None)
  Receive Date: 20150227
  Receipt Date: 20150227
  Transmission Date: 20150721
  Serious: Yes (Other)
  Sender: FDA-Public Use
  Company Number: LMI-2014-00540

PATIENT
  Age: 57 Year
  Sex: Male
  Weight: 95 kg

DRUGS (5)
  1. CLINDAMYCIN [Concomitant]
     Active Substance: CLINDAMYCIN\CLINDAMYCIN PHOSPHATE
  2. DEFINITY [Suspect]
     Active Substance: PERFLUTREN
     Indication: STRESS ECHOCARDIOGRAM
     Dosage: 2ML DEFINITY DILUTED IN 8ML PRESERVATIVE FREE NORMAL SALINE (2ML, 1 IN 1 D)
     Route: 040
     Dates: start: 20141211, end: 20141211
  3. TYLENOL [Concomitant]
     Active Substance: ACETAMINOPHEN
  4. DEFINITY [Suspect]
     Active Substance: PERFLUTREN
     Indication: STRESS ECHOCARDIOGRAM
     Dosage: 2ML DEFINITY DILUTED IN 8ML PRESERVATIVE FREE NORMAL SALINE (2ML, 1 IN 1 D)
     Route: 040
     Dates: start: 20141211, end: 20141211
  5. PEPCID [Concomitant]
     Active Substance: FAMOTIDINE

REACTIONS (1)
  - Anaphylactic reaction [None]

NARRATIVE: CASE EVENT DATE: 20141211
